FAERS Safety Report 10341134 (Version 21)
Quarter: 2017Q2

REPORT INFORMATION
  Report Type: Spontaneous
  Country: US (occurrence: US)
  Receive Date: 20140724
  Receipt Date: 20170502
  Transmission Date: 20170829
  Serious: Yes (Hospitalization)
  Sender: FDA-Public Use
  Company Number: US-ACTELION-A-NJ2014-102673

PATIENT
  Age: 70 Year
  Sex: Female
  Weight: 44.44 kg

DRUGS (14)
  1. SILDENAFIL. [Concomitant]
     Active Substance: SILDENAFIL
  2. ADEMPAS [Suspect]
     Active Substance: RIOCIGUAT
     Indication: PULMONARY ARTERIAL HYPERTENSION
     Dosage: 2.5 MG, TID
     Route: 048
  3. ADEMPAS [Suspect]
     Active Substance: RIOCIGUAT
     Dosage: 2.5 MG, TID
     Route: 048
  4. VENTAVIS [Suspect]
     Active Substance: ILOPROST
     Indication: PULMONARY HYPERTENSION
     Dosage: 5 MCG, 4-5 X D
     Route: 055
     Dates: start: 20120709
  5. VENTAVIS [Suspect]
     Active Substance: ILOPROST
     Dosage: 5 MCG, 6-9X/DAY
     Route: 055
  6. VENTAVIS [Suspect]
     Active Substance: ILOPROST
     Dosage: 5 MCG, 4-5 X D
     Route: 055
     Dates: start: 20120629
  7. OPSUMIT [Suspect]
     Active Substance: MACITENTAN
     Dosage: UNK
     Route: 048
  8. ADEMPAS [Suspect]
     Active Substance: RIOCIGUAT
     Dosage: 2 MG, TID
     Route: 048
     Dates: start: 20141031
  9. OPSUMIT [Suspect]
     Active Substance: MACITENTAN
     Indication: PULMONARY HYPERTENSION
     Dosage: 10 MG, QD
     Route: 048
     Dates: start: 20140805
  10. ADEMPAS [Suspect]
     Active Substance: RIOCIGUAT
     Dosage: 1.5 MG, TID
     Route: 048
  11. ADEMPAS [Suspect]
     Active Substance: RIOCIGUAT
     Dosage: 2.5 MG, TID
     Route: 048
  12. ADEMPAS [Suspect]
     Active Substance: RIOCIGUAT
     Dosage: 2.5 MG, TID
     Route: 048
  13. ADEMPAS [Suspect]
     Active Substance: RIOCIGUAT
     Dosage: 1 MG, TID
     Route: 048
     Dates: start: 20140327
  14. ADEMPAS [Suspect]
     Active Substance: RIOCIGUAT
     Dosage: 2.0 MG, TID
     Route: 048

REACTIONS (23)
  - Hernia [Unknown]
  - Viral upper respiratory tract infection [Unknown]
  - Headache [Unknown]
  - Rectal prolapse [Unknown]
  - Dyspepsia [Unknown]
  - Gastrointestinal disorder [Unknown]
  - Colostomy [Unknown]
  - Laryngitis [Unknown]
  - Intestinal obstruction [Unknown]
  - Head injury [Unknown]
  - Fall [Unknown]
  - Drug dose omission [Not Recovered/Not Resolved]
  - Haemoglobin decreased [Unknown]
  - Cough [Unknown]
  - Urinary tract infection [Unknown]
  - Vomiting [Unknown]
  - Dyspnoea [Unknown]
  - Small intestinal obstruction [Unknown]
  - Dyspnoea exertional [Unknown]
  - Diarrhoea [Unknown]
  - Oesophageal disorder [Unknown]
  - Pulmonary thrombosis [Unknown]
  - Nausea [Unknown]

NARRATIVE: CASE EVENT DATE: 201412
